FAERS Safety Report 8731068 (Version 2)
Quarter: 2012Q4

REPORT INFORMATION
  Report Type: 
  Country: US (occurrence: US)
  Receive Date: 20120820
  Receipt Date: 20120923
  Transmission Date: 20130627
  Serious: Yes (Hospitalization, Other)
  Sender: FDA-Public Use
  Company Number: US-BIOGENIDEC-2012BI027777

PATIENT
  Age: 50 Year
  Sex: Female

DRUGS (8)
  1. AVONEX [Suspect]
     Indication: MULTIPLE SCLEROSIS
     Route: 030
  2. AVONEX [Suspect]
     Indication: MULTIPLE SCLEROSIS
     Route: 030
     Dates: start: 200703
  3. BACLOFEN [Concomitant]
  4. NALTREXONE [Concomitant]
  5. PROTONIX [Concomitant]
  6. OMEGA-3 POLYUNSATURATED FATTY ACIDS [Concomitant]
  7. BABY ASA [Concomitant]
  8. ZOLOFT [Concomitant]

REACTIONS (3)
  - Hypoxic-ischaemic encephalopathy [Unknown]
  - Partial seizures with secondary generalisation [Unknown]
  - Multiple sclerosis [Unknown]
